FAERS Safety Report 20954311 (Version 2)
Quarter: 2022Q3

REPORT INFORMATION
  Report Type: Spontaneous
  Country: US (occurrence: US)
  Receive Date: 20220614
  Receipt Date: 20220930
  Transmission Date: 20221027
  Serious: Yes (Other)
  Sender: FDA-Public Use
  Company Number: US-BRISTOL-MYERS SQUIBB COMPANY-2022-049348

PATIENT
  Age: 43 Year
  Sex: Male

DRUGS (2)
  1. SPRYCEL [Suspect]
     Active Substance: DASATINIB
     Indication: Chronic myeloid leukaemia
     Route: 048
     Dates: start: 20220517
  2. SPRYCEL [Suspect]
     Active Substance: DASATINIB
     Route: 048
     Dates: start: 20220518

REACTIONS (3)
  - Diarrhoea [Unknown]
  - Peripheral swelling [Unknown]
  - Pulmonary congestion [Unknown]

NARRATIVE: CASE EVENT DATE: 20220517
